FAERS Safety Report 17345474 (Version 1)
Quarter: 2020Q1

REPORT INFORMATION
  Report Type: Spontaneous
  Country: US (occurrence: US)
  Receive Date: 20200129
  Receipt Date: 20200129
  Transmission Date: 20200409
  Serious: Yes (Other)
  Sender: FDA-Public Use
  Company Number: US-PFIZER INC-2020033502

PATIENT
  Age: 53 Year
  Sex: Female
  Weight: 71.21 kg

DRUGS (1)
  1. THERMACARE ULTRA [Suspect]
     Active Substance: CAMPHOR (SYNTHETIC)\CAPSICUM OLEORESIN\MENTHOL\METHYL SALICYLATE
     Indication: PAIN
     Dosage: UNK, AS NEEDED
     Route: 061
     Dates: start: 202001, end: 202001

REACTIONS (3)
  - Myocardial infarction [Recovering/Resolving]
  - Burning sensation [Recovered/Resolved]
  - Rash [Recovered/Resolved]

NARRATIVE: CASE EVENT DATE: 202001
